FAERS Safety Report 5675266-0 (Version None)
Quarter: 2008Q1

REPORT INFORMATION
  Report Type: 
  Country: None (occurrence: None)
  Receive Date: 20080320
  Receipt Date: 20080310
  Transmission Date: 20080703
  Serious: Yes (Other)
  Sender: FDA-Public Use
  Company Number: IE-ELI_LILLY_AND_COMPANY-IE200706004043

PATIENT
  Sex: Female

DRUGS (5)
  1. CYMBALTA [Suspect]
     Indication: DEPRESSION
     Dosage: UNK, UNKNOWN
     Dates: start: 20060424
  2. CYMBALTA [Suspect]
     Dosage: 60 MG, 2/D
     Route: 065
  3. EFFEXOR [Concomitant]
     Dosage: 225 MG, DAILY (1/D)
     Dates: end: 20060401
  4. LAMICTAL [Concomitant]
     Indication: DEPRESSION
     Dosage: 25 MG, DAILY (1/D)
     Dates: start: 20060123
  5. LAMICTAL [Concomitant]
     Dosage: 100 MG, 2/D
     Dates: start: 20060310

REACTIONS (4)
  - MACULAR DEGENERATION [None]
  - MYOPIA [None]
  - RETINAL PIGMENTATION [None]
  - VISUAL DISTURBANCE [None]
